FAERS Safety Report 14710085 (Version 1)
Quarter: 2018Q2

REPORT INFORMATION
  Report Type: Spontaneous
  Country: FR (occurrence: FR)
  Receive Date: 20180403
  Receipt Date: 20180403
  Transmission Date: 20180711
  Serious: Yes (Other)
  Sender: FDA-Public Use
  Company Number: FR-PFIZER INC-2018129444

PATIENT
  Age: 75 Year
  Sex: Female

DRUGS (6)
  1. CELEBREX [Suspect]
     Active Substance: CELECOXIB
     Indication: URINARY TRACT INFECTION
     Dosage: UNK
  2. FURADANTINE [Interacting]
     Active Substance: NITROFURANTOIN
     Dosage: 2 DF, TWICE DAILY (4 DF, DAILY; TWO TABLETS TAKEN IN THE MORNING AND IN THE EVENING)
     Dates: start: 20180216, end: 20180216
  3. TRAMADOL. [Concomitant]
     Active Substance: TRAMADOL
     Dosage: UNK
  4. FURADANTINE [Interacting]
     Active Substance: NITROFURANTOIN
     Indication: URINARY TRACT INFECTION
     Dosage: 1 DF, ONCE DAILY (TAKEN IN THE EVENING)
     Dates: start: 20180215, end: 20180215
  5. FURADANTINE [Interacting]
     Active Substance: NITROFURANTOIN
     Dosage: 2 DF, DAILY
     Dates: start: 20180219, end: 20180220
  6. FURADANTINE [Interacting]
     Active Substance: NITROFURANTOIN
     Dosage: 3 DF, DAILY
     Dates: start: 20180217, end: 20180218

REACTIONS (4)
  - Drug interaction [Unknown]
  - Product use in unapproved indication [Unknown]
  - Abdominal pain [Recovered/Resolved]
  - Haematochezia [Not Recovered/Not Resolved]

NARRATIVE: CASE EVENT DATE: 201802
